FAERS Safety Report 7365440-X (Version None)
Quarter: 2011Q1

REPORT INFORMATION
  Report Type: 
  Country: None (occurrence: None)
  Receive Date: 20110317
  Receipt Date: 20110317
  Transmission Date: 20110831
  Serious: Yes (Hospitalization)
  Sender: FDA-Public Use
  Company Number: None

PATIENT
  Age: 81 Year
  Sex: Male
  Weight: 81 kg

DRUGS (2)
  1. FUROSEMIDE [Suspect]
     Indication: OEDEMA
     Dosage: 20 MG EVERY DAY PO
     Route: 048
     Dates: start: 20101209, end: 20110127
  2. FUROSEMIDE [Suspect]
     Indication: HYPERTENSION
     Dosage: 20 MG EVERY DAY PO
     Route: 048
     Dates: start: 20101209, end: 20110127

REACTIONS (1)
  - PEMPHIGOID [None]
